FAERS Safety Report 4267181-4 (Version None)
Quarter: 2004Q1

REPORT INFORMATION
  Report Type: 
  Country: None (occurrence: None)
  Receive Date: 20040107
  Receipt Date: 20031125
  Transmission Date: 20041129
  Serious: No
  Sender: FDA-Public Use
  Company Number: 2003AP04222

PATIENT
  Age: 48 Year
  Sex: Male

DRUGS (2)
  1. IRESSA [Suspect]
     Indication: LUNG ADENOCARCINOMA
     Dosage: 250 MG DAILY
  2. IRESSA [Suspect]
     Indication: METASTASES TO CENTRAL NERVOUS SYSTEM
     Dosage: 250 MG DAILY

REACTIONS (8)
  - DERMATITIS ACNEIFORM [None]
  - DIARRHOEA [None]
  - DRUG INEFFECTIVE [None]
  - GLOSSITIS [None]
  - GRANULOMA [None]
  - PARONYCHIA [None]
  - RASH SCALY [None]
  - STAPHYLOCOCCAL INFECTION [None]
